FAERS Safety Report 14946694 (Version 1)
Quarter: 2018Q2

REPORT INFORMATION
  Report Type: Spontaneous
  Country: US (occurrence: US)
  Receive Date: 20180508
  Receipt Date: 20180508
  Transmission Date: 20180711
  Serious: Yes (Life-Threatening, Hospitalization, Disabling, Other)
  Sender: FDA-Public Use
  Company Number: None

PATIENT
  Age: 46 Year
  Sex: Male
  Weight: 113 kg

DRUGS (1)
  1. ETANERCEPT [Suspect]
     Active Substance: ETANERCEPT
     Indication: PSORIATIC ARTHROPATHY
     Dosage: ?          OTHER FREQUENCY:WEEKLY;?
     Route: 058

REACTIONS (20)
  - Oedema [None]
  - Kidney fibrosis [None]
  - Cytology abnormal [None]
  - Tachypnoea [None]
  - Polyuria [None]
  - Therapy cessation [None]
  - Skin infection [None]
  - Tachycardia [None]
  - Anaemia [None]
  - Glomerulonephritis [None]
  - Renal tubular atrophy [None]
  - Hypertension [None]
  - Alveolar lung disease [None]
  - Organising pneumonia [None]
  - Dyspnoea [None]
  - Rales [None]
  - Haemodialysis [None]
  - Vascular hyalinosis [None]
  - Condition aggravated [None]
  - Arteriosclerosis [None]

NARRATIVE: CASE EVENT DATE: 20180201
